FAERS Safety Report 14104235 (Version 3)
Quarter: 2019Q4

REPORT INFORMATION
  Report Type: Spontaneous
  Country: GB (occurrence: GB)
  Receive Date: 20171018
  Receipt Date: 20191105
  Transmission Date: 20200122
  Serious: Yes (Other)
  Sender: FDA-Public Use
  Company Number: GB-SA-2017SA198937

PATIENT
  Sex: Male

DRUGS (1)
  1. MYOZYME [Suspect]
     Active Substance: ALGLUCOSIDASE ALFA
     Dosage: 100 MG,QW
     Route: 041

REACTIONS (5)
  - Tracheostomy infection [Not Recovered/Not Resolved]
  - Product use issue [Unknown]
  - Ear infection [Unknown]
  - Tracheal disorder [Unknown]
  - Secretion discharge [Unknown]

NARRATIVE: CASE EVENT DATE: 2017
